FAERS Safety Report 8890521 (Version 1)
Quarter: 2012Q4

REPORT INFORMATION
  Report Type: 
  Country: US (occurrence: US)
  Receive Date: 20121107
  Receipt Date: 20121107
  Transmission Date: 20130627
  Serious: No
  Sender: FDA-Public Use
  Company Number: US-PFIZER INC-2012271452

PATIENT
  Age: 50 Year
  Sex: Female
  Weight: 78.46 kg

DRUGS (2)
  1. PREMPRO [Suspect]
     Indication: POSTMENOPAUSAL SYMPTOMS
     Dosage: UNK, 1x/day
     Route: 048
     Dates: start: 1999, end: 2009
  2. EFFEXOR XR [Suspect]
     Indication: DEPRESSION
     Dosage: 75 mg, 1x/day
     Route: 048
     Dates: end: 2009

REACTIONS (1)
  - Depression [Not Recovered/Not Resolved]
